FAERS Safety Report 7478818-0 (Version None)
Quarter: 2011Q2

REPORT INFORMATION
  Report Type: 
  Country: None (occurrence: None)
  Receive Date: 20110513
  Receipt Date: 20110509
  Transmission Date: 20111010
  Serious: Yes (Death, Hospitalization)
  Sender: FDA-Public Use
  Company Number: BR-SANOFI-AVENTIS-2011SA029053

PATIENT
  Age: 51 Year
  Sex: Male
  Weight: 46 kg

DRUGS (76)
  1. LEUCOVORIN CALCIUM [Suspect]
     Indication: COLORECTAL CANCER
     Route: 065
  2. OMEPRAZOLE [Concomitant]
  3. OMEPRAZOLE [Concomitant]
  4. OMEPRAZOLE [Concomitant]
     Dates: start: 20101228, end: 20110120
  5. MORPHINE [Concomitant]
     Dates: start: 20101118, end: 20101128
  6. TRANEXAMIC ACID [Concomitant]
     Dosage: 3 TABLETS PER DAY
     Dates: start: 20110214, end: 20110221
  7. TRANEXAMIC ACID [Concomitant]
     Dosage: 3 TABLETS PER DAY
     Dates: start: 20110223, end: 20110324
  8. TRANEXAMIC ACID [Concomitant]
     Dosage: 1 CAPSULE PER DAY
     Dates: start: 20110405, end: 20110411
  9. OXALIPLATIN [Suspect]
     Route: 041
     Dates: start: 20110407, end: 20110407
  10. OMEPRAZOLE [Concomitant]
     Dates: start: 20101129, end: 20101201
  11. OMEPRAZOLE [Concomitant]
     Dates: start: 20101129, end: 20101201
  12. OMEPRAZOLE [Concomitant]
     Dates: start: 20110211, end: 20110222
  13. METOCLOPRAMIDE [Concomitant]
     Indication: VOMITING
     Dates: start: 20101121, end: 20101121
  14. MORPHINE [Concomitant]
     Dates: start: 20101129, end: 20101201
  15. MORPHINE [Concomitant]
     Dates: start: 20101229, end: 20110325
  16. NEBACETIN [Concomitant]
     Indication: INFECTION
     Route: 061
     Dates: start: 20110112, end: 20110119
  17. BROMOPRIDE [Concomitant]
     Dosage: 3 TABLETS
     Dates: start: 20110213, end: 20110215
  18. TRANEXAMIC ACID [Concomitant]
     Dosage: 1 TABLET PER DAY
     Dates: start: 20110325, end: 20110404
  19. OMEPRAZOLE [Concomitant]
     Dates: start: 20101202, end: 20101228
  20. OMEPRAZOLE [Concomitant]
     Dates: start: 20110126, end: 20110210
  21. MORPHINE [Concomitant]
     Dates: start: 20110326, end: 20110415
  22. CLONAZEPAM [Concomitant]
     Indication: ANXIETY
     Dates: start: 20101215, end: 20110125
  23. CLONAZEPAM [Concomitant]
     Dates: start: 20110126, end: 20110325
  24. NEBACETIN [Concomitant]
     Route: 061
     Dates: start: 20110120, end: 20110201
  25. BROMOPRIDE [Concomitant]
     Dates: start: 20110302, end: 20110404
  26. TRANEXAMIC ACID [Concomitant]
     Indication: PROPHYLAXIS
     Dosage: 3 AMPOULE PER DAY
     Dates: start: 20110213, end: 20110214
  27. TRANEXAMIC ACID [Concomitant]
     Dosage: 1 TABLET PER DAY
     Dates: start: 20110325, end: 20110404
  28. TRANEXAMIC ACID [Concomitant]
     Dosage: 1 CAPSULE PER DAY
     Dates: start: 20110405, end: 20110411
  29. TRANEXAMIC ACID [Concomitant]
     Dosage: 1 CAPSULE PER DAY
     Dates: start: 20110405, end: 20110411
  30. ESOMEPRAZOLE SODIUM [Concomitant]
     Dates: start: 20110224, end: 20110415
  31. OXALIPLATIN [Suspect]
     Indication: COLORECTAL CANCER
     Route: 041
     Dates: start: 20100831, end: 20100831
  32. OMEPRAZOLE [Concomitant]
     Dates: start: 20110120, end: 20110126
  33. OMEPRAZOLE [Concomitant]
     Dates: start: 20110120, end: 20110126
  34. OMEPRAZOLE [Concomitant]
     Dates: start: 20110126, end: 20110210
  35. OMEPRAZOLE [Concomitant]
     Dates: start: 20110211, end: 20110222
  36. METOCLOPRAMIDE [Concomitant]
     Dates: start: 20110325, end: 20110415
  37. MORPHINE [Concomitant]
     Dates: start: 20101202, end: 20101228
  38. MORPHINE [Concomitant]
     Dates: start: 20101229, end: 20110325
  39. BROMOPRIDE [Concomitant]
     Dates: start: 20110225, end: 20110301
  40. TRANEXAMIC ACID [Concomitant]
     Dosage: 3 TABLETS PER DAY
     Dates: start: 20110214, end: 20110221
  41. TRANEXAMIC ACID [Concomitant]
     Dosage: 3 TABLETS PER DAY
     Dates: start: 20110223, end: 20110324
  42. INVESTIGATIONAL DRUG [Suspect]
     Indication: COLORECTAL CANCER
     Route: 048
     Dates: start: 20100831, end: 20110415
  43. FLUOROURACIL [Suspect]
     Indication: COLORECTAL CANCER
     Route: 042
     Dates: start: 20100831, end: 20110101
  44. OMEPRAZOLE [Concomitant]
  45. OMEPRAZOLE [Concomitant]
     Dates: start: 20101129, end: 20101201
  46. OMEPRAZOLE [Concomitant]
     Dates: start: 20101202, end: 20101228
  47. OMEPRAZOLE [Concomitant]
     Dates: start: 20101202, end: 20101228
  48. OMEPRAZOLE [Concomitant]
     Dates: start: 20110120, end: 20110126
  49. METOCLOPRAMIDE [Concomitant]
     Indication: NAUSEA
     Dates: start: 20101121, end: 20101121
  50. BROMOPRIDE [Concomitant]
     Dates: start: 20110225, end: 20110301
  51. TRANEXAMIC ACID [Concomitant]
     Dosage: 3 AMPOULE PER DAY
     Dates: start: 20110213, end: 20110214
  52. TRANEXAMIC ACID [Concomitant]
     Dosage: 3 AMPOULE PER DAY
     Dates: start: 20110213, end: 20110214
  53. OMEPRAZOLE [Concomitant]
     Dates: start: 20101228, end: 20110120
  54. OMEPRAZOLE [Concomitant]
     Dates: start: 20110126, end: 20110210
  55. METOCLOPRAMIDE [Concomitant]
     Dates: start: 20110325, end: 20110415
  56. MORPHINE [Concomitant]
     Dates: start: 20110326, end: 20110415
  57. TRANEXAMIC ACID [Concomitant]
     Dosage: 1 TABLET PER DAY
     Dates: start: 20110325, end: 20110404
  58. NEODECADRON [Concomitant]
     Indication: INFECTION PROPHYLAXIS
     Route: 061
     Dates: start: 20110326, end: 20110402
  59. ONDANSETRON [Concomitant]
     Indication: NAUSEA
     Dates: start: 20110325, end: 20110331
  60. OMEPRAZOLE [Concomitant]
     Indication: PROPHYLAXIS
  61. OMEPRAZOLE [Concomitant]
  62. OMEPRAZOLE [Concomitant]
     Indication: GASTRITIS
  63. MORPHINE [Concomitant]
     Indication: PAIN PROPHYLAXIS
     Dates: start: 20101118, end: 20101128
  64. NEBACETIN [Concomitant]
     Route: 061
     Dates: start: 20110403, end: 20110424
  65. BROMOPRIDE [Concomitant]
     Dosage: 3 TABLETS
     Dates: start: 20110216, end: 20110224
  66. TRANEXAMIC ACID [Concomitant]
     Dosage: 3 TABLETS PER DAY
     Dates: start: 20110223, end: 20110324
  67. OMEPRAZOLE [Concomitant]
     Dates: start: 20101228, end: 20110120
  68. OMEPRAZOLE [Concomitant]
     Dates: start: 20110211, end: 20110222
  69. MORPHINE [Concomitant]
     Dates: start: 20101129, end: 20101201
  70. MORPHINE [Concomitant]
     Dates: start: 20101202, end: 20101228
  71. CLONAZEPAM [Concomitant]
     Dates: start: 20110326, end: 20110424
  72. BROMOPRIDE [Concomitant]
     Indication: NAUSEA
     Dosage: 3 TABLETS
     Dates: start: 20110213, end: 20110215
  73. BROMOPRIDE [Concomitant]
     Dosage: 3 TABLETS
     Dates: start: 20110216, end: 20110224
  74. BROMOPRIDE [Concomitant]
     Dates: start: 20110302, end: 20110404
  75. TRANEXAMIC ACID [Concomitant]
     Dosage: 3 TABLETS PER DAY
     Dates: start: 20110214, end: 20110221
  76. ONDANSETRON [Concomitant]
     Indication: VOMITING
     Dates: start: 20110325, end: 20110331

REACTIONS (4)
  - RENAL FAILURE ACUTE [None]
  - POST PROCEDURAL HAEMORRHAGE [None]
  - THROMBOCYTOPENIA [None]
  - FATIGUE [None]
